FAERS Safety Report 7479070-2 (Version None)
Quarter: 2011Q2

REPORT INFORMATION
  Report Type: 
  Country: None (occurrence: None)
  Receive Date: 20110511
  Receipt Date: 20110511
  Transmission Date: 20111010
  Serious: Yes (Other)
  Sender: FDA-Public Use
  Company Number: None

PATIENT
  Age: 39 Year
  Sex: Female
  Weight: 81.6475 kg

DRUGS (1)
  1. NOVOLOG [Suspect]
     Indication: DIABETES MELLITUS
     Dosage: SLIDING SCALE AT MEALS INJECTION
     Dates: start: 20110401

REACTIONS (5)
  - LIQUID PRODUCT PHYSICAL ISSUE [None]
  - BLOOD GLUCOSE INCREASED [None]
  - PRODUCT QUALITY ISSUE [None]
  - URINE KETONE BODY PRESENT [None]
  - PRODUCT CONTAINER ISSUE [None]
